FAERS Safety Report 4372412-6 (Version None)
Quarter: 2004Q2

REPORT INFORMATION
  Report Type: 
  Country: None (occurrence: None)
  Receive Date: 20040602
  Receipt Date: 20040517
  Transmission Date: 20050107
  Serious: Yes (Hospitalization)
  Sender: FDA-Public Use
  Company Number: 2004AP01801

PATIENT
  Age: 54 Year
  Sex: Female
  Weight: 46 kg

DRUGS (12)
  1. MEROPEN [Suspect]
     Indication: PYREXIA
     Dosage: 0.5 G TID IVD
     Route: 041
     Dates: start: 20031031, end: 20031031
  2. MEROPEN [Suspect]
     Indication: PYREXIA
     Dosage: 0.5 G QID IVD
     Dates: start: 20031101, end: 20031110
  3. IMURAN [Concomitant]
  4. CLARITHROMYCIN [Concomitant]
  5. VANCOMYCIN [Concomitant]
  6. SOLU MODERIN [Concomitant]
  7. FOSCAVIR [Concomitant]
  8. FUNGUARD [Concomitant]
  9. LASIX [Concomitant]
  10. URSO [Concomitant]
  11. SOLDACTONE [Concomitant]
  12. ALBUMIN (HUMAN) [Concomitant]

REACTIONS (3)
  - DEPRESSED LEVEL OF CONSCIOUSNESS [None]
  - HEPATIC FUNCTION ABNORMAL [None]
  - JAUNDICE [None]
